FAERS Safety Report 9512060 (Version 1)
Quarter: 2013Q3

REPORT INFORMATION
  Report Type: Spontaneous
  Country: FR (occurrence: None)
  Receive Date: 20130906
  Receipt Date: 20130906
  Transmission Date: 20140515
  Serious: Yes (Hospitalization)
  Sender: FDA-Public Use
  Company Number: SYM-2013-10365

PATIENT
  Age: 23 Year
  Sex: Female

DRUGS (4)
  1. FLAGYL [Suspect]
     Route: 048
     Dates: start: 20120102, end: 20120104
  2. SOLUPRED (PREDNISOLONE) [Suspect]
     Route: 048
     Dates: start: 2011, end: 20120104
  3. AMOXICILLIN [Suspect]
     Route: 048
     Dates: start: 2011, end: 2011
  4. AUGMENTIN [Suspect]

REACTIONS (4)
  - Toxic skin eruption [None]
  - Hepatocellular injury [None]
  - Face oedema [None]
  - Epstein-Barr virus antibody positive [None]
